FAERS Safety Report 15192916 (Version 1)
Quarter: 2018Q3

REPORT INFORMATION
  Report Type: Spontaneous
  Country: GR (occurrence: GR)
  Receive Date: 20180725
  Receipt Date: 20180725
  Transmission Date: 20181010
  Serious: Yes (Other)
  Sender: FDA-Public Use
  Company Number: GR-SUN PHARMACEUTICAL INDUSTRIES LTD-2018RR-179376

PATIENT

DRUGS (4)
  1. TEMOZOLOMIDE. [Suspect]
     Active Substance: TEMOZOLOMIDE
     Dosage: 75 MG/M2, UNK
     Route: 048
  2. TEMOZOLOMIDE. [Suspect]
     Active Substance: TEMOZOLOMIDE
     Indication: GLIOBLASTOMA MULTIFORME
     Dosage: 200 MG/M2, ON DAYS 1?5 EVERY 28 DAYS (5/28 CYCLE) / 19 CYCLES
     Route: 048
  3. COPPER GLUCONATE [Suspect]
     Active Substance: COPPER GLUCONATE
     Indication: GLIOBLASTOMA MULTIFORME
     Dosage: 3 MG, BID
     Route: 048
  4. DISULFIRAM. [Suspect]
     Active Substance: DISULFIRAM
     Indication: GLIOBLASTOMA MULTIFORME
     Dosage: 250 MG, QD
     Route: 048

REACTIONS (1)
  - Malignant neoplasm progression [Unknown]
